FAERS Safety Report 12335147 (Version 2)
Quarter: 2016Q2

REPORT INFORMATION
  Report Type: Report from Study
  Country: FR (occurrence: FR)
  Receive Date: 20160504
  Receipt Date: 20160517
  Transmission Date: 20160815
  Serious: Yes (Other)
  Sender: FDA-Public Use
  Company Number: FR-ABBVIE-16P-056-1617488-00

PATIENT
  Age: 58 Year
  Sex: Male

DRUGS (1)
  1. DUODOPA [Suspect]
     Active Substance: CARBIDOPA\LEVODOPA
     Indication: PARKINSON^S DISEASE
     Dosage: MD: 8ML; CFR DURING THE DAY 3ML/H FROM 08:00AM TO 10:00PM; BOLUS DOSE OF 1ML
     Route: 050
     Dates: start: 201603

REACTIONS (4)
  - Stoma site pain [Unknown]
  - Stoma site extravasation [Unknown]
  - Stoma site infection [Unknown]
  - Staphylococcal infection [Unknown]

NARRATIVE: CASE EVENT DATE: 20160427
